FAERS Safety Report 7001761-8 (Version None)
Quarter: 2010Q3

REPORT INFORMATION
  Report Type: 
  Country: None (occurrence: None)
  Receive Date: 20100920
  Receipt Date: 20100412
  Transmission Date: 20110219
  Serious: Yes (Hospitalization)
  Sender: FDA-Public Use
  Company Number: US-ASTRAZENECA-2009UW15635

PATIENT
  Sex: Male

DRUGS (5)
  1. SEROQUEL [Suspect]
     Indication: ANXIETY
     Dosage: 150 TO 400MG
     Route: 048
     Dates: start: 20060925
  2. ABILIFY [Concomitant]
     Route: 048
     Dates: start: 20060925
  3. DIVALPROEX SODIUM [Concomitant]
  4. DIVALPROEX SODIUM [Concomitant]
     Route: 048
     Dates: start: 20090115
  5. ZIPRASIDONE HCL [Concomitant]
     Route: 048

REACTIONS (4)
  - BLOOD GLUCOSE INCREASED [None]
  - DIABETES MELLITUS [None]
  - DIABETES MELLITUS INADEQUATE CONTROL [None]
  - DIABETIC KETOACIDOSIS [None]
